FAERS Safety Report 7189843-1 (Version None)
Quarter: 2010Q4

REPORT INFORMATION
  Report Type: 
  Country: None (occurrence: None)
  Receive Date: 20101123
  Receipt Date: 20101015
  Transmission Date: 20110411
  Serious: No
  Sender: FDA-Public Use
  Company Number: 018634

PATIENT
  Sex: Female

DRUGS (3)
  1. CIMZIA [Suspect]
     Indication: CROHN'S DISEASE
     Dosage: (2 INJECTION SUBCUTANEOUS)
     Route: 058
     Dates: start: 20100215, end: 20100916
  2. MESALAMINE [Concomitant]
  3. MERCAPTOPURINE [Concomitant]

REACTIONS (5)
  - FATIGUE [None]
  - HEADACHE [None]
  - NAUSEA [None]
  - PREGNANCY [None]
  - PYREXIA [None]
